FAERS Safety Report 4431242-7 (Version None)
Quarter: 2004Q3

REPORT INFORMATION
  Report Type: 
  Country: None (occurrence: None)
  Receive Date: 20040818
  Receipt Date: 20040728
  Transmission Date: 20050211
  Serious: Yes (Hospitalization)
  Sender: FDA-Public Use
  Company Number: US_0408104580

PATIENT
  Age: 44 Year
  Sex: Male

DRUGS (6)
  1. VINCRISTINE SULFATE [Suspect]
     Indication: B-CELL LYMPHOMA STAGE IV
     Dosage: 0.5 MG OTHER
     Route: 050
  2. RITUXIMAB [Concomitant]
  3. DOXORUBICIN HCL [Concomitant]
  4. ETOPOSIDE [Concomitant]
  5. CYCLOPHOSPHAMIDE [Concomitant]
  6. PREDNISONE [Concomitant]

REACTIONS (1)
  - CEREBRAL HAEMORRHAGE [None]
